FAERS Safety Report 25228141 (Version 1)
Quarter: 2025Q2

REPORT INFORMATION
  Report Type: Spontaneous
  Country: US (occurrence: US)
  Receive Date: 20250423
  Receipt Date: 20250423
  Transmission Date: 20250717
  Serious: No
  Sender: ROCHE
  Company Number: US-ROCHE-10000262862

PATIENT
  Sex: Female

DRUGS (16)
  1. ACTEMRA ACTPEN [Suspect]
     Active Substance: TOCILIZUMAB
     Indication: Osteoarthritis
     Route: 058
  2. LEVOTHYROXINE [Concomitant]
     Active Substance: LEVOTHYROXINE
  3. PANTOPRAZOLE [Concomitant]
     Active Substance: PANTOPRAZOLE
  4. CELECOXIB [Concomitant]
     Active Substance: CELECOXIB
  5. CITALOPRAM [Concomitant]
     Active Substance: CITALOPRAM
  6. CLOTRIMIX [Concomitant]
  7. DEXILANT [Concomitant]
     Active Substance: DEXLANSOPRAZOLE
  8. FENOFIBRATE [Concomitant]
     Active Substance: FENOFIBRATE
  9. FUROSEMIDE [Concomitant]
     Active Substance: FUROSEMIDE
  10. HYDROCORTISONE [Concomitant]
     Active Substance: HYDROCORTISONE
  11. KLOR-CON [Concomitant]
     Active Substance: POTASSIUM CHLORIDE
  12. AMITIZA [Concomitant]
     Active Substance: LUBIPROSTONE
  13. AMOXLIN [Concomitant]
  14. MELOXICAM [Concomitant]
     Active Substance: MELOXICAM
  15. METHYLPREDNISOLONE [Concomitant]
     Active Substance: METHYLPREDNISOLONE
  16. ONDANSETRON [Concomitant]
     Active Substance: ONDANSETRON

REACTIONS (2)
  - Off label use [Unknown]
  - No adverse event [Unknown]
